FAERS Safety Report 5424814-4 (Version None)
Quarter: 2007Q3

REPORT INFORMATION
  Report Type: 
  Country: None (occurrence: None)
  Receive Date: 20070824
  Receipt Date: 20070817
  Transmission Date: 20080115
  Serious: Yes (Hospitalization)
  Sender: FDA-Public Use
  Company Number: FR-BRISTOL-MYERS SQUIBB COMPANY-13887070

PATIENT
  Age: 79 Year
  Sex: Male

DRUGS (1)
  1. METFORMIN HCL [Suspect]
     Indication: DIABETES MELLITUS
     Dosage: 1 DOSAGE FORM = 1000 MG TABLET.
     Route: 048
     Dates: start: 20070701, end: 20070801

REACTIONS (2)
  - ERYTHEMA [None]
  - PRURITUS [None]
